FAERS Safety Report 9035143 (Version 1)
Quarter: 2013Q1

REPORT INFORMATION
  Report Type: Report from Study
  Country: US (occurrence: US)
  Receive Date: 20130129
  Receipt Date: 20130129
  Transmission Date: 20140127
  Serious: No
  Sender: FDA-Public Use
  Company Number: US-ABBOTT-12P-163-0889126-00

PATIENT
  Age: 64 Year
  Sex: Female

DRUGS (4)
  1. HUMIRA 40 MG/0.8 ML PEN [Suspect]
     Indication: CROHN^S DISEASE
     Dosage: LOADING DOSE
     Dates: start: 20111223
  2. CHOLESTEROL MEDICINE [Concomitant]
     Indication: PRODUCT USED FOR UNKNOWN INDICATION
  3. BLOOD PRESSURE MEDICINE [Concomitant]
     Indication: PRODUCT USED FOR UNKNOWN INDICATION
  4. IMURAN [Concomitant]
     Indication: CROHN^S DISEASE

REACTIONS (1)
  - Fatigue [Recovering/Resolving]
